FAERS Safety Report 7305744-X (Version None)
Quarter: 2011Q1

REPORT INFORMATION
  Report Type: 
  Country: None (occurrence: None)
  Receive Date: 20110222
  Receipt Date: 20110221
  Transmission Date: 20110831
  Serious: Yes (Other)
  Sender: FDA-Public Use
  Company Number: B0662447A

PATIENT
  Sex: Female

DRUGS (5)
  1. APOMORPHINE [Concomitant]
  2. REQUIP XL [Suspect]
     Indication: PARKINSON'S DISEASE
     Dosage: 20MG PER DAY
     Route: 065
  3. SINEMET CR [Suspect]
     Route: 065
  4. SINEMET [Concomitant]
     Route: 065
  5. REQUIP [Concomitant]
     Route: 065

REACTIONS (3)
  - WITHDRAWAL SYNDROME [None]
  - PARKINSON'S DISEASE [None]
  - PAIN [None]
